FAERS Safety Report 4497407-3 (Version None)
Quarter: 2004Q4

REPORT INFORMATION
  Report Type: 
  Country: None (occurrence: None)
  Receive Date: 20041104
  Receipt Date: 20041022
  Transmission Date: 20050328
  Serious: Yes (Hospitalization, Other)
  Sender: FDA-Public Use
  Company Number: 2004063862

PATIENT
  Sex: Female

DRUGS (1)
  1. ZOLOFT [Suspect]
     Indication: SCHOOL REFUSAL
     Dosage: 50 MG
     Dates: end: 20031201

REACTIONS (7)
  - AGGRESSION [None]
  - ANGER [None]
  - CONDITION AGGRAVATED [None]
  - INTENTIONAL SELF-INJURY [None]
  - LACERATION [None]
  - SCHOOL REFUSAL [None]
  - SUICIDAL IDEATION [None]
